FAERS Safety Report 7864930-0 (Version None)
Quarter: 2011Q4

REPORT INFORMATION
  Report Type: 
  Country: None (occurrence: None)
  Receive Date: 20111028
  Receipt Date: 20100921
  Transmission Date: 20120403
  Serious: No
  Sender: FDA-Public Use
  Company Number: US-GLAXOSMITHKLINE-A0882341A

PATIENT
  Age: 71 Year
  Sex: Female

DRUGS (9)
  1. BUPROPION HCL [Concomitant]
  2. LEVOTHYROXINE SODIUM [Concomitant]
  3. PREMARIN [Concomitant]
  4. LIPITOR [Concomitant]
  5. AMITRIPTYLINE HCL [Concomitant]
  6. ADVAIR DISKUS 100/50 [Suspect]
     Indication: DYSPHONIA
     Dosage: 1BLS TWICE PER DAY
     Route: 055
  7. DIAZEPAM [Concomitant]
  8. METOPROLOL TARTRATE [Concomitant]
  9. RAMIPRIL [Concomitant]

REACTIONS (1)
  - DIARRHOEA [None]
